FAERS Safety Report 8571750-0 (Version None)
Quarter: 2012Q3

REPORT INFORMATION
  Report Type: 
  Country: None (occurrence: None)
  Receive Date: 20120806
  Receipt Date: 20120802
  Transmission Date: 20120928
  Serious: Yes (Hospitalization, Other)
  Sender: FDA-Public Use
  Company Number: PHFR2012GB002441

PATIENT
  Sex: Male

DRUGS (5)
  1. CLOZARIL [Suspect]
     Dosage: 400 MG, QD
     Route: 048
  2. CLOZARIL [Suspect]
     Dosage: 300 MG, DAILY
     Route: 048
  3. CLOZARIL [Suspect]
     Dosage: 200 MG, UNK
     Route: 048
     Dates: end: 20120413
  4. HYOSCINE HYDROBROMIDE [Concomitant]
  5. CLOZARIL [Suspect]
     Indication: SCHIZOPHRENIA
     Route: 048
     Dates: start: 20010701

REACTIONS (9)
  - RENAL IMPAIRMENT [None]
  - LOWER RESPIRATORY TRACT INFECTION [None]
  - LOSS OF CONSCIOUSNESS [None]
  - PULMONARY EMBOLISM [None]
  - NEUROLEPTIC MALIGNANT SYNDROME [None]
  - ANTIPSYCHOTIC DRUG LEVEL INCREASED [None]
  - CATATONIA [None]
  - BLOOD CREATINE PHOSPHOKINASE INCREASED [None]
  - RHABDOMYOLYSIS [None]
